FAERS Safety Report 8795411 (Version 1)
Quarter: 2012Q4

REPORT INFORMATION
  Report Type: 
  Country: US (occurrence: US)
  Receive Date: 20120917
  Receipt Date: 20120917
  Transmission Date: 20130627
  Serious: Yes (Disabling, Other)
  Sender: FDA-Public Use
  Company Number: US-TEVA-358967USA

PATIENT
  Age: 22 Year
  Sex: Female

DRUGS (1)
  1. AMPHETAMINE ADIPATE\DEXTROAMPHETAMINE [Suspect]
     Route: 048
     Dates: start: 20090731

REACTIONS (32)
  - Headache [Unknown]
  - Dizziness [Unknown]
  - Head injury [Unknown]
  - Concussion [Unknown]
  - Supraventricular tachycardia [Unknown]
  - Sinus arrhythmia [Unknown]
  - Ventricular extrasystoles [Unknown]
  - Cardiac disorder [Unknown]
  - Insomnia [Unknown]
  - Disorientation [Unknown]
  - Fall [Unknown]
  - Injury [Unknown]
  - Vertigo [Unknown]
  - Complex regional pain syndrome [Unknown]
  - Brain injury [Unknown]
  - Syncope [Unknown]
  - Nervous system disorder [Unknown]
  - Mental disorder [Unknown]
  - Orthopaedic examination abnormal [Unknown]
  - Palpitations [Unknown]
  - Sinus tachycardia [Unknown]
  - Myocardial infarction [Unknown]
  - Mania [Unknown]
  - Agitation [Unknown]
  - Anxiety [Unknown]
  - Restlessness [Unknown]
  - Nausea [Unknown]
  - Decreased appetite [Unknown]
  - Limb injury [None]
  - Product quality issue [None]
  - Product measured potency issue [None]
  - Sinus bradycardia [None]
